FAERS Safety Report 8287251-3 (Version None)
Quarter: 2012Q2

REPORT INFORMATION
  Report Type: 
  Country: None (occurrence: None)
  Receive Date: 20120416
  Receipt Date: 20120410
  Transmission Date: 20120825
  Serious: Yes (Hospitalization, Other)
  Sender: FDA-Public Use
  Company Number: US-AMGEN-USASP2011042728

PATIENT
  Age: 57 Year
  Sex: Female

DRUGS (1)
  1. ENBREL [Suspect]
     Indication: RHEUMATOID ARTHRITIS
     Dosage: 50 MG, QWK
     Dates: start: 20080101

REACTIONS (11)
  - NECROSIS ISCHAEMIC [None]
  - DYSSTASIA [None]
  - URINARY TRACT INFECTION [None]
  - PNEUMONIA [None]
  - HEART RATE INCREASED [None]
  - MEMORY IMPAIRMENT [None]
  - ADRENAL INSUFFICIENCY [None]
  - DEEP VEIN THROMBOSIS [None]
  - DYSPNOEA [None]
  - DIZZINESS [None]
  - HYPOKINESIA [None]
